FAERS Safety Report 9664729 (Version 2)
Quarter: 2014Q2

REPORT INFORMATION
  Report Type: Spontaneous
  Country: US (occurrence: US)
  Receive Date: 20131101
  Receipt Date: 20140501
  Transmission Date: 20141212
  Serious: Yes (Hospitalization)
  Sender: FDA-Public Use
  Company Number: US-B.I. PHARMACEUTICALS,INC./RIDGEFIELD-2013-BI-34743BP

PATIENT
  Sex: Male
  Weight: 90.72 kg

DRUGS (7)
  1. PRADAXA [Suspect]
     Indication: ATRIAL FIBRILLATION
     Dosage: 300 MG
     Route: 048
     Dates: start: 201110, end: 20120201
  2. ASPIRIN [Suspect]
     Indication: PRODUCT USED FOR UNKNOWN INDICATION
     Dosage: 81 MG
     Route: 048
  3. FLOMAX [Concomitant]
     Dosage: 0.4 MG
     Route: 048
     Dates: start: 201003
  4. LASIX [Concomitant]
     Route: 048
  5. ALLOPURINOL [Concomitant]
     Dosage: 300 MG
     Route: 048
     Dates: start: 2008
  6. BENICAR [Concomitant]
     Dosage: 25 MG
     Route: 048
  7. ALPRAZOLAM [Concomitant]
     Route: 048

REACTIONS (8)
  - Gastrointestinal haemorrhage [Recovered/Resolved]
  - Peptic ulcer [Recovered/Resolved]
  - Gastritis [Recovered/Resolved]
  - Anaemia [Unknown]
  - Coagulopathy [Unknown]
  - Renal failure acute [Unknown]
  - Thrombocytopenia [Unknown]
  - Haematuria [Unknown]
